FAERS Safety Report 11789381 (Version 3)
Quarter: 2016Q4

REPORT INFORMATION
  Report Type: Spontaneous
  Country: US (occurrence: US)
  Receive Date: 20151201
  Receipt Date: 20161214
  Transmission Date: 20170206
  Serious: Yes (Hospitalization)
  Sender: FDA-Public Use
  Company Number: US-PFIZER INC-2015396334

PATIENT
  Age: 64 Year
  Sex: Female
  Weight: 72.56 kg

DRUGS (21)
  1. REVATIO [Suspect]
     Active Substance: SILDENAFIL CITRATE
     Indication: LUNG DISORDER
  2. BYSTOLIC [Concomitant]
     Active Substance: NEBIVOLOL HYDROCHLORIDE
     Dosage: 10 MG, UNK
  3. HYDRALAZINE HCL [Concomitant]
     Active Substance: HYDRALAZINE HYDROCHLORIDE
     Dosage: 50 MG, 3X/DAY
     Route: 048
  4. PREDNISONE. [Concomitant]
     Active Substance: PREDNISONE
     Dosage: 10 MG 2 TABLETS DAILY
     Route: 048
  5. GUAIFENESIN/CODEINE [Concomitant]
     Active Substance: CODEINE PHOSPHATE\GUAIFENESIN
     Indication: COUGH
     Dosage: 10 ML, AS NEEDED (EVERY 4 TO 6 HOURS)
     Route: 048
  6. POTASSIUM CHLORIDE. [Concomitant]
     Active Substance: POTASSIUM CHLORIDE
     Dosage: 10 MEQ, 4X/DAY
  7. PREMARIN [Concomitant]
     Active Substance: ESTROGENS, CONJUGATED
     Dosage: 0.625 MG, DAILY
  8. BUMETANIDE. [Concomitant]
     Active Substance: BUMETANIDE
     Dosage: 2 MG, 2X/DAY
     Route: 048
  9. REVATIO [Suspect]
     Active Substance: SILDENAFIL CITRATE
     Indication: PULMONARY ARTERIAL HYPERTENSION
     Dosage: 20 MG, 3X/DAY
     Route: 048
     Dates: start: 201411
  10. AZATHIOPRINE. [Concomitant]
     Active Substance: AZATHIOPRINE
     Dosage: 50 MG, 3X/DAY
     Route: 048
  11. BUDESONIDE. [Concomitant]
     Active Substance: BUDESONIDE
     Dosage: 2 ML, 2X/DAY
     Route: 055
  12. BUMETANIDE. [Concomitant]
     Active Substance: BUMETANIDE
     Dosage: 1 TAB DAILY, THEN 2 TABS TUESDAY AND THURSDAY
     Route: 048
  13. FLUOXETINE HCL [Concomitant]
     Active Substance: FLUOXETINE HYDROCHLORIDE
     Dosage: 20 MG, 1X/DAY
     Route: 048
  14. LOMOTIL [Concomitant]
     Active Substance: ATROPINE SULFATE\DIPHENOXYLATE HYDROCHLORIDE
     Dosage: 1 DF, AS NEEDED (ATROPINE SULFATE 0.025 MG, DIPHENOXYLATE HYDROCHLORIDE 2.5 MG)
  15. CALCIUM D [Concomitant]
     Active Substance: CALCIUM\VITAMIN D
     Dosage: CALCIUM CARBONATE 1000 MG, COLECALCIFEROL 800 MG
     Route: 048
  16. ALPRAZOLAM. [Concomitant]
     Active Substance: ALPRAZOLAM
     Dosage: 0.5 MG, UNK
  17. AZITHROMYCIN ANHYDROUS. [Concomitant]
     Active Substance: AZITHROMYCIN ANHYDROUS
     Dosage: 500 MG, 1X/DAY
     Route: 048
  18. HYDROCODONE/ACETAMINOPHEN [Concomitant]
     Active Substance: ACETAMINOPHEN\HYDROCODONE
     Indication: PAIN
     Dosage: 7.5MG/325 MG, AS NEEDED (HYDROCODONE 7.5MG, ACETAMINOPHEN 325MG)
     Route: 048
  19. OMEPRAZOLE. [Concomitant]
     Active Substance: OMEPRAZOLE
     Dosage: 20 MG, UNK
  20. FORTEO [Concomitant]
     Active Substance: TERIPARATIDE
     Dosage: 20 UG, 1X/DAY (600 MCG/2.4 ML SOLUTION)
     Route: 058
  21. AZATHIOPRINE. [Concomitant]
     Active Substance: AZATHIOPRINE
     Dosage: 50 MG, 2X/DAY

REACTIONS (3)
  - Upper limb fracture [Unknown]
  - Pain [Unknown]
  - Fall [Unknown]

NARRATIVE: CASE EVENT DATE: 20151101
